FAERS Safety Report 9398854 (Version 1)
Quarter: 2013Q3

REPORT INFORMATION
  Report Type: Spontaneous
  Country: US (occurrence: US)
  Receive Date: 20130712
  Receipt Date: 20130712
  Transmission Date: 20140515
  Serious: No
  Sender: FDA-Public Use
  Company Number: US-009507513-1307USA006605

PATIENT
  Age: 17 Month
  Sex: Male

DRUGS (2)
  1. MIRALAX [Suspect]
     Indication: CONSTIPATION
     Dosage: 7.5 G, UNKNOWN
     Route: 048
     Dates: start: 201301
  2. MIRALAX [Suspect]
     Indication: MEDICAL OBSERVATION
     Dosage: 3 DF, UNKNOWN
     Route: 048
     Dates: start: 201301

REACTIONS (5)
  - Drug administered to patient of inappropriate age [Unknown]
  - Off label use [Unknown]
  - Incorrect drug administration duration [Unknown]
  - Inappropriate schedule of drug administration [Unknown]
  - Overdose [Unknown]
